FAERS Safety Report 6202095-1 (Version None)
Quarter: 2009Q2

REPORT INFORMATION
  Report Type: 
  Country: None (occurrence: None)
  Receive Date: 20090526
  Receipt Date: 20090515
  Transmission Date: 20091009
  Serious: Yes (Hospitalization, Other)
  Sender: FDA-Public Use
  Company Number: US-JNJFOC-20090303561

PATIENT
  Sex: Female
  Weight: 85.6 kg

DRUGS (6)
  1. DOXIL [Suspect]
     Route: 058
  2. DOXIL [Suspect]
     Indication: OVARIAN CANCER RECURRENT
     Route: 058
  3. GRANISETRON HCL [Concomitant]
     Indication: ANTIEMETIC SUPPORTIVE CARE
     Route: 065
  4. DEXAMETHASONE 4MG TAB [Concomitant]
     Indication: ANTIEMETIC SUPPORTIVE CARE
     Route: 065
  5. LORAZEPAM [Concomitant]
     Indication: ANTIEMETIC SUPPORTIVE CARE
     Route: 065
  6. ARANESP [Concomitant]
     Indication: ANAEMIA
     Route: 065

REACTIONS (1)
  - LEUKOENCEPHALOPATHY [None]
